FAERS Safety Report 26135912 (Version 1)
Quarter: 2025Q4

REPORT INFORMATION
  Report Type: Spontaneous
  Country: US (occurrence: None)
  Receive Date: 20251209
  Receipt Date: 20251209
  Transmission Date: 20260118
  Serious: Yes (Hospitalization)
  Sender: FDA-CTU
  Company Number: None

PATIENT
  Age: 73 Year
  Sex: Male
  Weight: 88 kg

DRUGS (2)
  1. AMIODARONE HYDROCHLORIDE [Suspect]
     Active Substance: AMIODARONE HYDROCHLORIDE
     Indication: Atrial fibrillation
     Dosage: FREQUENCY : DAILY;
     Route: 048
     Dates: start: 20171121, end: 20250328
  2. ELIQUIS [Suspect]
     Active Substance: APIXABAN

REACTIONS (5)
  - Interstitial lung disease [None]
  - Oedema peripheral [None]
  - Pulmonary oedema [None]
  - Therapy cessation [None]
  - Toxicity to various agents [None]

NARRATIVE: CASE EVENT DATE: 20250221
